FAERS Safety Report 8590150-0 (Version None)
Quarter: 2012Q3

REPORT INFORMATION
  Report Type: 
  Country: None (occurrence: None)
  Receive Date: 20120813
  Receipt Date: 19880926
  Transmission Date: 20120928
  Serious: Yes (Hospitalization)
  Sender: FDA-Public Use
  Company Number: US-ROCHE-1099847

PATIENT
  Sex: Male

DRUGS (3)
  1. ACTIVASE [Suspect]
     Indication: MYOCARDIAL INFARCTION
     Dates: start: 19880904
  2. LIDOCAINE [Concomitant]
     Dates: start: 19880904
  3. HEPARIN [Concomitant]
     Dates: start: 19880904

REACTIONS (1)
  - CHEST PAIN [None]
